FAERS Safety Report 5882182-8 (Version None)
Quarter: 2008Q3

REPORT INFORMATION
  Report Type: 
  Country: None (occurrence: None)
  Receive Date: 20080912
  Receipt Date: 20080724
  Transmission Date: 20090109
  Serious: No
  Sender: FDA-Public Use
  Company Number: US-ABBOTT-08P-163-0466125-00

PATIENT
  Sex: Female
  Weight: 118.04 kg

DRUGS (4)
  1. HUMIRA [Suspect]
     Indication: PSORIASIS
     Route: 058
     Dates: start: 20080401
  2. UNSPECIFIED MEDICATION [Concomitant]
     Indication: DIABETES MELLITUS
  3. UNSPECIFIED MEDICATION [Concomitant]
     Indication: HYPERTENSION
  4. UNSPECIFIED MEDICATION [Concomitant]
     Indication: BLOOD CHOLESTEROL

REACTIONS (1)
  - ACCIDENTAL EXPOSURE [None]
